FAERS Safety Report 9514672 (Version 1)
Quarter: 2013Q1

REPORT INFORMATION
  Report Type: Spontaneous
  Country: US (occurrence: None)
  Receive Date: 20130305
  Receipt Date: 20130305
  Transmission Date: 20140127
  Serious: Yes (Hospitalization, Other)
  Sender: FDA-Public Use
  Company Number: 163-21880-12112092

PATIENT
  Age: 67 Year
  Sex: Female
  Weight: 63.96 kg

DRUGS (8)
  1. REVLIMID (LENALIDOMIDE) (CAPSULES) [Suspect]
     Indication: PLASMA CELL MYELOMA
     Dosage: 15 MG, 14 IN 14 D, PO
     Route: 048
     Dates: start: 20120111, end: 20120327
  2. GABAPENTIN (GABAPENTIN) (UNKNOWN) (GABAPENTIN) [Concomitant]
  3. FOLIC ACID (FOLIC ACID) (UNKNOWN) [Concomitant]
  4. DAPSONE (DAPSONE) (UNKNOWN) [Concomitant]
  5. MULTIVITAMINS (MULTIVITAMINS) (UNKNOWN) [Concomitant]
  6. ZOMETA (ZOLEDRONIC ACID) (UNKNOWN) [Concomitant]
  7. ASPIRIN (ACETYLSALICYLIC ACID) (UNKNOWN) (ACETYLSALICYLIC ACID) [Concomitant]
  8. ZOVIRAX (ACICLOVIR) (UNKNOWN) [Concomitant]

REACTIONS (3)
  - Diarrhoea [None]
  - Dehydration [None]
  - Rash [None]
